FAERS Safety Report 18263577 (Version 1)
Quarter: 2020Q3

REPORT INFORMATION
  Report Type: Report from Study
  Country: IT (occurrence: IT)
  Receive Date: 20200914
  Receipt Date: 20200914
  Transmission Date: 20201103
  Serious: Yes (Other)
  Sender: FDA-Public Use
  Company Number: IT-MYLANLABS-2020M1077488

PATIENT
  Age: 64 Year
  Sex: Female

DRUGS (8)
  1. DEPAKIN [Concomitant]
     Active Substance: VALPROATE SODIUM
     Dosage: 500 MILLIGRAM
  2. SINEMET [Concomitant]
     Active Substance: CARBIDOPA\LEVODOPA
     Dosage: 150 MILLIGRAM
  3. GABAPENTIN. [Suspect]
     Active Substance: GABAPENTIN
     Indication: PRODUCT USED FOR UNKNOWN INDICATION
     Dosage: 12 GRAM, TOTAL
     Dates: start: 20200705, end: 20200705
  4. QUETIAPINE. [Concomitant]
     Active Substance: QUETIAPINE
     Dosage: 300 MILLIGRAM
  5. MEMANTINE HYDROCHLORIDE. [Concomitant]
     Active Substance: MEMANTINE HYDROCHLORIDE
     Dosage: 10 MILLIGRAM
  6. LERCADIP                           /01366401/ [Concomitant]
     Active Substance: LERCANIDIPINE
     Dosage: 10 MILLIGRAM
  7. TRITTICO [Concomitant]
     Active Substance: TRAZODONE HYDROCHLORIDE
     Dosage: UNK
  8. VALIUM [Concomitant]
     Active Substance: DIAZEPAM
     Dosage: UNK

REACTIONS (4)
  - Suicide attempt [Recovering/Resolving]
  - Hypokinesia [Recovering/Resolving]
  - Drug abuse [Recovering/Resolving]
  - Bradyphrenia [Recovering/Resolving]

NARRATIVE: CASE EVENT DATE: 20200705
